FAERS Safety Report 9305904 (Version 1)
Quarter: 2013Q2

REPORT INFORMATION
  Report Type: Spontaneous
  Country: US (occurrence: None)
  Receive Date: 20130520
  Receipt Date: 20130520
  Transmission Date: 20140414
  Serious: Yes (Other)
  Sender: FDA-Public Use
  Company Number: 2013AP005191

PATIENT
  Age: 80 Year
  Sex: Female

DRUGS (6)
  1. DILT-XR [Suspect]
     Indication: HYPERTENSION
  2. CALCIUM CARBONATE [Suspect]
     Indication: VITAMIN SUPPLEMENTATION
     Dates: start: 201304
  3. CLOPIDOGREL [Suspect]
     Indication: STENT PLACEMENT
  4. BABY ASPIRIN [Suspect]
     Indication: STENT PLACEMENT
  5. TRIAMTERENE [Suspect]
     Indication: HYPERTENSION
  6. TOPROL [Concomitant]

REACTIONS (9)
  - Tinnitus [None]
  - Nausea [None]
  - Malaise [None]
  - Dysgeusia [None]
  - Burning sensation [None]
  - Ear discomfort [None]
  - Hyperhidrosis [None]
  - Choking [None]
  - Dizziness [None]
